FAERS Safety Report 4444400-2 (Version None)
Quarter: 2004Q3

REPORT INFORMATION
  Report Type: 
  Country: None (occurrence: None)
  Receive Date: 20040902
  Receipt Date: 20040817
  Transmission Date: 20050211
  Serious: Yes (Hospitalization)
  Sender: FDA-Public Use
  Company Number: 177043

PATIENT
  Age: 43 Year
  Sex: Female
  Weight: 83.0083 kg

DRUGS (8)
  1. AVONEX [Suspect]
     Indication: MULTIPLE SCLEROSIS
     Dosage: 30 MCG QW IM
     Route: 030
     Dates: start: 20010401
  2. EFFEXOR [Concomitant]
  3. MEDICATION (NOS) [Concomitant]
  4. HYZAAR [Concomitant]
  5. TOPAMAX [Concomitant]
  6. ZOMIG [Concomitant]
  7. ZYRTEC [Concomitant]
  8. CLONAZEPAM [Concomitant]

REACTIONS (18)
  - ABDOMINAL ADHESIONS [None]
  - ABSCESS [None]
  - ARTHROPOD BITE [None]
  - ASTHMA [None]
  - BRONCHITIS [None]
  - CIRCULATORY COLLAPSE [None]
  - ENDOMETRIOSIS [None]
  - FULL BLOOD COUNT DECREASED [None]
  - GASTRIC BYPASS [None]
  - GASTROOESOPHAGEAL REFLUX DISEASE [None]
  - HAEMATOCHEZIA [None]
  - HERPES ZOSTER [None]
  - HYSTERECTOMY [None]
  - LUNG DISORDER [None]
  - OVARIAN ENLARGEMENT [None]
  - POST PROCEDURAL COMPLICATION [None]
  - SINUSITIS [None]
  - STAPHYLOCOCCAL INFECTION [None]
